FAERS Safety Report 23240140 (Version 2)
Quarter: 2023Q4

REPORT INFORMATION
  Report Type: Spontaneous
  Country: KR (occurrence: KR)
  Receive Date: 20231129
  Receipt Date: 20231206
  Transmission Date: 20240110
  Serious: Yes (Other)
  Sender: FDA-Public Use
  Company Number: KR-PFIZER INC-202300401031

PATIENT
  Age: 55 Year
  Sex: Male

DRUGS (4)
  1. NIRMATRELVIR\RITONAVIR [Interacting]
     Active Substance: NIRMATRELVIR\RITONAVIR
     Indication: COVID-19 treatment
     Dosage: UNK
  2. TACROLIMUS [Interacting]
     Active Substance: TACROLIMUS
     Indication: Renal transplant
     Dosage: 1.5 MG, 2X/DAY, AT HD6, HD7AND HD8
  3. TACROLIMUS [Interacting]
     Active Substance: TACROLIMUS
     Dosage: 1.5 MG, 2X/DAY, AT F/U
  4. PRANDIN [Concomitant]
     Active Substance: REPAGLINIDE
     Dosage: 12 MG, 1X/DAY

REACTIONS (2)
  - Drug interaction [Recovering/Resolving]
  - Acute kidney injury [Recovering/Resolving]
